FAERS Safety Report 8103065-9 (Version None)
Quarter: 2012Q1

REPORT INFORMATION
  Report Type: 
  Country: None (occurrence: None)
  Receive Date: 20120201
  Receipt Date: 20120123
  Transmission Date: 20120608
  Serious: Yes (Other)
  Sender: FDA-Public Use
  Company Number: US-BAYER-2011-046338

PATIENT
  Age: 23 Year
  Sex: Female
  Weight: 113.38 kg

DRUGS (4)
  1. PREVACID [Concomitant]
     Dosage: UNK
     Dates: start: 20080609
  2. YAZ [Suspect]
     Indication: CONTRACEPTION
     Dosage: UNK
     Dates: start: 20071001, end: 20080201
  3. MULTI-VITAMIN [Concomitant]
  4. ORTHO TRI-CYCLEN LO [Concomitant]
     Dosage: UNK
     Dates: start: 20080201, end: 20091001

REACTIONS (5)
  - GENERAL PHYSICAL HEALTH DETERIORATION [None]
  - CHOLECYSTITIS CHRONIC [None]
  - ABDOMINAL PAIN [None]
  - EMOTIONAL DISTRESS [None]
  - ANXIETY [None]
